FAERS Safety Report 21492881 (Version 1)
Quarter: 2022Q4

REPORT INFORMATION
  Report Type: Spontaneous
  Country: US (occurrence: None)
  Receive Date: 20221020
  Receipt Date: 20221020
  Transmission Date: 20230112
  Serious: No
  Sender: FDA-Public Use
  Company Number: None

PATIENT
  Age: 55 Year
  Sex: Male

DRUGS (2)
  1. AMBRISENTAN [Suspect]
     Active Substance: AMBRISENTAN
     Indication: Pulmonary arterial hypertension
     Dosage: FREQUENCY : DAILY;?
     Route: 048
     Dates: start: 20210701
  2. TADALAFIL [Suspect]
     Active Substance: TADALAFIL

REACTIONS (5)
  - Chills [None]
  - Tremor [None]
  - Nausea [None]
  - Peripheral swelling [None]
  - Blood magnesium decreased [None]

NARRATIVE: CASE EVENT DATE: 20220929
